FAERS Safety Report 14492548 (Version 2)
Quarter: 2018Q1

REPORT INFORMATION
  Report Type: Spontaneous
  Country: NO (occurrence: NO)
  Receive Date: 20180206
  Receipt Date: 20180213
  Transmission Date: 20180509
  Serious: Yes (Life-Threatening, Other)
  Sender: FDA-Public Use
  Company Number: NO-ASTRAZENECA-2018SE13206

PATIENT
  Age: 61 Year
  Sex: Female

DRUGS (2)
  1. TRIMETHOPRIM. [Interacting]
     Active Substance: TRIMETHOPRIM
     Indication: PRODUCT USED FOR UNKNOWN INDICATION
     Dosage: 160.0MG UNKNOWN
     Route: 048
  2. ATACAND [Suspect]
     Active Substance: CANDESARTAN CILEXETIL
     Indication: PRODUCT USED FOR UNKNOWN INDICATION
     Dosage: 8.0MG UNKNOWN
     Route: 048

REACTIONS (2)
  - Drug interaction [Unknown]
  - Hyperkalaemia [Unknown]
